FAERS Safety Report 14934155 (Version 3)
Quarter: 2018Q3

REPORT INFORMATION
  Report Type: Spontaneous
  Country: US (occurrence: US)
  Receive Date: 20180524
  Receipt Date: 20180703
  Transmission Date: 20181010
  Serious: No
  Sender: FDA-Public Use
  Company Number: US-B.I. PHARMACEUTICALS,INC./RIDGEFIELD-2018-BI-027448

PATIENT
  Sex: Male

DRUGS (2)
  1. METFORMIN HYDROCHLORIDE + GLYBURIDE [Concomitant]
     Indication: DIABETES MELLITUS
     Dosage: FORM STRENGTH: 500 MG/ 5 MG; FORMULATION: TABLET
     Route: 048
     Dates: start: 2015
  2. TRADJENTA [Suspect]
     Active Substance: LINAGLIPTIN
     Indication: DIABETES MELLITUS
     Route: 048
     Dates: start: 2016, end: 20180522

REACTIONS (3)
  - Medication residue present [Not Recovered/Not Resolved]
  - Glycosylated haemoglobin increased [Not Recovered/Not Resolved]
  - Product solubility abnormal [Unknown]

NARRATIVE: CASE EVENT DATE: 2016
